FAERS Safety Report 5910276-7 (Version None)
Quarter: 2008Q4

REPORT INFORMATION
  Report Type: 
  Country: None (occurrence: None)
  Receive Date: 20081007
  Receipt Date: 20080722
  Transmission Date: 20090506
  Serious: No
  Sender: FDA-Public Use
  Company Number: A0738885A

PATIENT
  Age: 83 Year
  Sex: Female

DRUGS (2)
  1. ADVAIR DISKUS 100/50 [Suspect]
     Indication: DRUG USE FOR UNKNOWN INDICATION
     Dosage: 115MCG PER DAY
     Route: 055
  2. ADVAIR DISKUS 100/50 [Suspect]
     Route: 055

REACTIONS (2)
  - DYSPHONIA [None]
  - SPEECH DISORDER [None]
